FAERS Safety Report 9482666 (Version 1)
Quarter: 2013Q3

REPORT INFORMATION
  Report Type: Spontaneous
  Country: US (occurrence: US)
  Receive Date: 20130828
  Receipt Date: 20130828
  Transmission Date: 20140515
  Serious: No
  Sender: FDA-Public Use
  Company Number: US-009507513-1308USA011507

PATIENT
  Sex: Female

DRUGS (1)
  1. TINACTIN LIQUID SPRAY [Suspect]
     Indication: PRODUCT USED FOR UNKNOWN INDICATION
     Dosage: UNK, ONCE
     Route: 061
     Dates: start: 20130725

REACTIONS (2)
  - Dysphonia [Unknown]
  - Accidental exposure to product [Unknown]
